FAERS Safety Report 24536867 (Version 3)
Quarter: 2025Q3

REPORT INFORMATION
  Report Type: Spontaneous
  Country: US (occurrence: US)
  Receive Date: 20241022
  Receipt Date: 20250910
  Transmission Date: 20251021
  Serious: Yes (Other)
  Sender: SANOFI AVENTIS
  Company Number: US-SA-2024SA300155

PATIENT
  Age: 63 Year
  Sex: Female

DRUGS (1)
  1. DUPIXENT [Suspect]
     Active Substance: DUPILUMAB
     Indication: Dermatitis atopic
     Dosage: 300 MG, QOW
     Route: 058

REACTIONS (9)
  - Hepatic cirrhosis [Unknown]
  - Dry skin [Unknown]
  - Stress [Unknown]
  - Cognitive disorder [Unknown]
  - Abnormal clotting factor [Unknown]
  - Tremor [Unknown]
  - Pruritus [Unknown]
  - Injection site bruising [Recovered/Resolved]
  - Injection site haematoma [Recovered/Resolved]

NARRATIVE: CASE EVENT DATE: 20240101
